FAERS Safety Report 12281361 (Version 1)
Quarter: 2016Q2

REPORT INFORMATION
  Report Type: Spontaneous
  Country: US (occurrence: None)
  Receive Date: 20160418
  Receipt Date: 20160418
  Transmission Date: 20160815
  Serious: Yes (Other)
  Sender: FDA-Public Use
  Company Number: None

PATIENT
  Age: 33 Year
  Sex: Male
  Weight: 81.65 kg

DRUGS (3)
  1. PYLERA [Suspect]
     Active Substance: BISMUTH SUBCITRATE POTASSIUM\METRONIDAZOLE\TETRACYCLINE HYDROCHLORIDE
     Indication: HELICOBACTER INFECTION
     Route: 048
     Dates: start: 20160401, end: 20160404
  2. PANTOPRAZOLE [Concomitant]
     Active Substance: PANTOPRAZOLE SODIUM
  3. PAROXETINE. [Concomitant]
     Active Substance: PAROXETINE

REACTIONS (6)
  - Chills [None]
  - Confusional state [None]
  - Dizziness [None]
  - Diarrhoea [None]
  - Abdominal pain [None]
  - Hyperhidrosis [None]

NARRATIVE: CASE EVENT DATE: 20160404
